FAERS Safety Report 11684130 (Version 3)
Quarter: 2016Q2

REPORT INFORMATION
  Report Type: Spontaneous
  Country: US (occurrence: US)
  Receive Date: 20151029
  Receipt Date: 20160512
  Transmission Date: 20160815
  Serious: Yes (Death, Hospitalization, Other)
  Sender: FDA-Public Use
  Company Number: US-009507513-1510USA014862

PATIENT
  Sex: Female
  Weight: 70.3 kg

DRUGS (2)
  1. VICTOZA [Suspect]
     Active Substance: LIRAGLUTIDE
     Indication: TYPE 2 DIABETES MELLITUS
     Dosage: 1.8 MG, QD
     Dates: start: 201201, end: 201301
  2. JANUVIA [Suspect]
     Active Substance: SITAGLIPTIN PHOSPHATE
     Indication: TYPE 2 DIABETES MELLITUS
     Dosage: 100 MG, QD
     Route: 048
     Dates: start: 20110127, end: 201110

REACTIONS (39)
  - Nausea [Recovering/Resolving]
  - Hypertension [Unknown]
  - Depression [Unknown]
  - Gastrooesophageal reflux disease [Unknown]
  - Bundle branch block left [Unknown]
  - Cellulitis [Unknown]
  - Sinus bradycardia [Unknown]
  - Diabetic neuropathy [Unknown]
  - Peripheral vascular disorder [Unknown]
  - Metastases to liver [Unknown]
  - Pneumonia [Unknown]
  - Clostridium difficile colitis [Unknown]
  - Mental status changes [Unknown]
  - Bile duct stent insertion [Unknown]
  - Transaminases increased [Unknown]
  - Endometriosis [Unknown]
  - Hysterectomy [Unknown]
  - Eczema [Unknown]
  - Irritable bowel syndrome [Not Recovered/Not Resolved]
  - Epistaxis [Unknown]
  - Cholecystitis [Unknown]
  - Blood glucose increased [Unknown]
  - Hypokalaemia [Unknown]
  - Ovarian cyst [Unknown]
  - Cholelithiasis [Unknown]
  - Pancreatic carcinoma metastatic [Unknown]
  - Deep vein thrombosis [Unknown]
  - Diabetes mellitus inadequate control [Unknown]
  - Nephrolithiasis [Unknown]
  - Smear cervix abnormal [Unknown]
  - Large intestine polyp [Unknown]
  - Death [Fatal]
  - Hypothyroidism [Unknown]
  - Nasal septal operation [Unknown]
  - Pulmonary embolism [Unknown]
  - Insulin-requiring type 2 diabetes mellitus [Unknown]
  - Vomiting [Recovering/Resolving]
  - Diarrhoea [Recovering/Resolving]
  - Tonsillectomy [Unknown]

NARRATIVE: CASE EVENT DATE: 20130502
